FAERS Safety Report 8159755-5 (Version None)
Quarter: 2012Q1

REPORT INFORMATION
  Report Type: 
  Country: None (occurrence: None)
  Receive Date: 20120223
  Receipt Date: 20120215
  Transmission Date: 20120608
  Serious: Yes (Hospitalization)
  Sender: FDA-Public Use
  Company Number: US-US-EMD SERONO, INC.-7113912

PATIENT
  Sex: Male

DRUGS (3)
  1. KLONOPIN [Concomitant]
     Indication: HEADACHE
  2. ZOLOFT [Concomitant]
     Indication: HEADACHE
  3. REBIF [Suspect]
     Indication: PRODUCT USED FOR UNKNOWN INDICATION
     Route: 058
     Dates: start: 20100212

REACTIONS (5)
  - SPINAL FRACTURE [None]
  - HEADACHE [None]
  - FALL [None]
  - BLOOD GLUCOSE INCREASED [None]
  - HYPOTENSION [None]
